FAERS Safety Report 6182209-2 (Version None)
Quarter: 2009Q2

REPORT INFORMATION
  Report Type: 
  Country: None (occurrence: None)
  Receive Date: 20090505
  Receipt Date: 20090427
  Transmission Date: 20091009
  Serious: Yes (Hospitalization)
  Sender: FDA-Public Use
  Company Number: 2009US001314

PATIENT
  Age: 60 Year
  Sex: Male

DRUGS (5)
  1. AMEVIVE [Suspect]
     Indication: PSORIASIS
     Dosage: 15 MG, WEEKLY, INTRAMUSCULAR
     Route: 030
     Dates: start: 20060901, end: 20061201
  2. HALDOL [Concomitant]
  3. LORAZEPAM [Concomitant]
  4. CANDESARTAN CILEXETIL [Concomitant]
  5. CLONAZEPAM [Concomitant]

REACTIONS (2)
  - PNEUMONIA [None]
  - SINUSITIS [None]
